FAERS Safety Report 13301645 (Version 1)
Quarter: 2017Q1

REPORT INFORMATION
  Report Type: Spontaneous
  Country: US (occurrence: US)
  Receive Date: 20170307
  Receipt Date: 20170307
  Transmission Date: 20170428
  Serious: No
  Sender: FDA-Public Use
  Company Number: US-009507513-1702USA010223

PATIENT
  Age: 75 Year
  Sex: Male

DRUGS (1)
  1. BELSOMRA [Suspect]
     Active Substance: SUVOREXANT
     Indication: POOR QUALITY SLEEP
     Dosage: 1 DF, UNKNOWN
     Route: 048
     Dates: start: 201611

REACTIONS (3)
  - Muscular weakness [Not Recovered/Not Resolved]
  - Arthropathy [Not Recovered/Not Resolved]
  - Joint instability [Not Recovered/Not Resolved]

NARRATIVE: CASE EVENT DATE: 201612
